FAERS Safety Report 9110137 (Version 1)
Quarter: 2013Q1

REPORT INFORMATION
  Report Type: Spontaneous
  Country: FR (occurrence: FR)
  Receive Date: 20130222
  Receipt Date: 20130222
  Transmission Date: 20140127
  Serious: Yes (Hospitalization)
  Sender: FDA-Public Use
  Company Number: FR-B.I. PHARMACEUTICALS,INC./RIDGEFIELD-2013-FF-00518FF

PATIENT
  Age: 73 Year
  Sex: Male

DRUGS (3)
  1. PRADAXA [Suspect]
     Indication: ATRIAL FIBRILLATION
     Dosage: 300 MG
     Route: 048
  2. ACE INHIBITOR [Concomitant]
  3. LASILIX [Concomitant]

REACTIONS (2)
  - Renal failure [Not Recovered/Not Resolved]
  - Off label use [Not Recovered/Not Resolved]
